FAERS Safety Report 6976742-0 (Version None)
Quarter: 2010Q3

REPORT INFORMATION
  Report Type: 
  Country: None (occurrence: None)
  Receive Date: 20100910
  Receipt Date: 20090505
  Transmission Date: 20110219
  Serious: No
  Sender: FDA-Public Use
  Company Number: US-WYE-H09229009

PATIENT
  Sex: Female
  Weight: 49.03 kg

DRUGS (4)
  1. PRISTIQ [Suspect]
     Indication: DEPRESSION
     Route: 048
     Dates: start: 20090428, end: 20090430
  2. MIRAPEX ^PHARMACIA-UPJOHN^ [Concomitant]
  3. PRIMIDONE [Concomitant]
  4. XANAX [Concomitant]

REACTIONS (2)
  - DYSURIA [None]
  - MICTURITION DISORDER [None]
